FAERS Safety Report 13786979 (Version 1)
Quarter: 2017Q3

REPORT INFORMATION
  Report Type: Spontaneous
  Country: US (occurrence: US)
  Receive Date: 20170725
  Receipt Date: 20170725
  Transmission Date: 20171127
  Serious: No
  Sender: FDA-Public Use
  Company Number: US-TEVA-779023ACC

PATIENT
  Sex: Female
  Weight: 102.51 kg

DRUGS (1)
  1. BACLOFEN. [Suspect]
     Active Substance: BACLOFEN
     Indication: PAIN
     Dosage: 20MG BY MOUTH UPTO THREE TIMES PER DAY AS NEEDED
     Dates: end: 201612

REACTIONS (1)
  - Feeling abnormal [Unknown]
